FAERS Safety Report 11406874 (Version 3)
Quarter: 2015Q3

REPORT INFORMATION
  Report Type: Report from Study
  Country: HU (occurrence: HU)
  Receive Date: 20150821
  Receipt Date: 20150901
  Transmission Date: 20151125
  Serious: Yes (Death, Hospitalization)
  Sender: FDA-Public Use
  Company Number: HU-PFIZER INC-2015277289

PATIENT
  Age: 67 Year
  Sex: Female

DRUGS (14)
  1. AMILORIDE [Concomitant]
     Active Substance: AMILORIDE
     Indication: MYOCARDIAL ISCHAEMIA
     Dosage: UNK
     Dates: start: 201105
  2. TEPERIN [Concomitant]
     Indication: MUSCULOSKELETAL PAIN
     Dosage: UNK
     Dates: start: 20131210, end: 20140408
  3. DOLGIT [Concomitant]
     Indication: MUSCULOSKELETAL PAIN
     Dosage: UNK
     Dates: start: 20131210, end: 20140408
  4. FERROGRAD FOLIC [Concomitant]
     Indication: ANAEMIA
     Dosage: UNK
     Dates: start: 201105
  5. AVEMAR [Concomitant]
     Indication: NON-SMALL CELL LUNG CANCER
     Dosage: UNK
     Dates: start: 201105
  6. BISOPROLOL [Concomitant]
     Active Substance: BISOPROLOL
     Indication: MYOCARDIAL ISCHAEMIA
     Dosage: UNK
     Dates: start: 201105
  7. DICLOFENAC [Concomitant]
     Active Substance: DICLOFENAC
     Indication: CHEST PAIN
     Dosage: UNK
     Dates: start: 2011, end: 20130212
  8. MYDETON [Concomitant]
     Indication: MUSCULOSKELETAL PAIN
     Dosage: UNK
     Dates: start: 20131210, end: 20140408
  9. SOLU-MEDROL [Suspect]
     Active Substance: METHYLPREDNISOLONE SODIUM SUCCINATE
     Indication: MUSCULOSKELETAL PAIN
     Dosage: UNK
  10. ERLOTINIB [Suspect]
     Active Substance: ERLOTINIB
     Indication: LUNG NEOPLASM MALIGNANT
     Dosage: 150 MG, 1X/DAY
     Route: 048
     Dates: start: 20140213
  11. ZIMPAX [Concomitant]
     Indication: PROPHYLAXIS
     Dosage: UNK
     Dates: start: 201105
  12. MAGNESIUM ASPARTATE W/POTASSIUM ASPARTATE [Concomitant]
     Indication: MYOCARDIAL ISCHAEMIA
     Dosage: UNK
     Dates: start: 201105, end: 20121210
  13. TEGRETOL [Suspect]
     Active Substance: CARBAMAZEPINE
     Indication: MUSCULOSKELETAL PAIN
     Dosage: UNK
     Dates: start: 20140409, end: 20140416
  14. DIGOXIN. [Concomitant]
     Active Substance: DIGOXIN
     Indication: MYOCARDIAL ISCHAEMIA
     Dosage: UNK
     Dates: start: 201105, end: 20121210

REACTIONS (1)
  - Cardiac failure [Fatal]

NARRATIVE: CASE EVENT DATE: 20140412
